FAERS Safety Report 5334381-1 (Version None)
Quarter: 2007Q2

REPORT INFORMATION
  Report Type: 
  Country: None (occurrence: None)
  Receive Date: 20070525
  Receipt Date: 20070517
  Transmission Date: 20071010
  Serious: Yes (Hospitalization, Other)
  Sender: FDA-Public Use
  Company Number: PHHO2006US18792

PATIENT

DRUGS (8)
  1. PROLEUKIN [Suspect]
     Indication: METASTATIC MALIGNANT MELANOMA
     Dosage: 170000 IU/KG, Q8H
     Route: 042
     Dates: start: 20030818
  2. PROLEUKIN [Suspect]
     Dosage: 170000 IU/KG, Q8H
     Route: 042
     Dates: start: 20030907, end: 20030912
  3. MDX-010 [Suspect]
     Indication: METASTATIC MALIGNANT MELANOMA
     Dosage: 2 MG/KG, ONCE
     Route: 042
     Dates: start: 20030725
  4. MDX-010 [Suspect]
     Dosage: 2 MG/KG, ONCE
     Route: 042
     Dates: start: 20030818
  5. MDX-010 [Suspect]
     Dosage: 2 MG/KG, ONCE
     Route: 042
     Dates: start: 20030907, end: 20030907
  6. DOPAMINE HCL [Concomitant]
     Dosage: 6 UG/KG/, QMIN
     Dates: start: 20030901
  7. METRONIDAZOLE [Concomitant]
     Indication: URINARY TRACT INFECTION
     Dates: start: 20030901, end: 20030901
  8. MEROPENEM [Concomitant]
     Indication: URINARY TRACT INFECTION
     Dates: start: 20030901

REACTIONS (17)
  - BLOOD BILIRUBIN INCREASED [None]
  - COLITIS [None]
  - COORDINATION ABNORMAL [None]
  - DEHYDRATION [None]
  - DIARRHOEA [None]
  - HYPERMAGNESAEMIA [None]
  - HYPERNATRAEMIA [None]
  - HYPERURICAEMIA [None]
  - HYPOALBUMINAEMIA [None]
  - HYPOCALCAEMIA [None]
  - HYPOTENSION [None]
  - HYPOXIA [None]
  - PYREXIA [None]
  - RENAL FAILURE [None]
  - SUPRAVENTRICULAR TACHYCARDIA [None]
  - TACHYCARDIA [None]
  - URINARY TRACT INFECTION [None]
